FAERS Safety Report 5465264-4 (Version None)
Quarter: 2007Q3

REPORT INFORMATION
  Report Type: 
  Country: None (occurrence: None)
  Receive Date: 20070924
  Receipt Date: 20070914
  Transmission Date: 20080115
  Serious: Yes (Other)
  Sender: FDA-Public Use
  Company Number: PHBS2007JP15282

PATIENT
  Age: 6 Year

DRUGS (1)
  1. ZADITEN [Suspect]
     Indication: RHINITIS ALLERGIC
     Route: 048
     Dates: start: 20070905

REACTIONS (1)
  - CONVULSION [None]
